FAERS Safety Report 17169087 (Version 1)
Quarter: 2019Q4

REPORT INFORMATION
  Report Type: Spontaneous
  Country: US (occurrence: US)
  Receive Date: 20191217
  Receipt Date: 20191217
  Transmission Date: 20200122
  Serious: Yes (Disabling)
  Sender: FDA-Public Use
  Company Number: None

PATIENT
  Age: 35 Year
  Sex: Male
  Weight: 76.5 kg

DRUGS (2)
  1. FEALS [CBD] [Suspect]
     Active Substance: CANNABIDIOL\HERBALS
     Indication: ANXIETY
     Dates: start: 20191209, end: 20191216
  2. FEALS [CBD] [Suspect]
     Active Substance: CANNABIDIOL\HERBALS
     Indication: SLEEP DISORDER THERAPY
     Dates: start: 20191209, end: 20191216

REACTIONS (3)
  - Suicidal ideation [None]
  - Depression [None]
  - Headache [None]

NARRATIVE: CASE EVENT DATE: 20191213
